FAERS Safety Report 10897621 (Version 1)
Quarter: 2015Q1

REPORT INFORMATION
  Report Type: Spontaneous
  Country: GB (occurrence: GB)
  Receive Date: 20150309
  Receipt Date: 20150309
  Transmission Date: 20150721
  Serious: Yes (Hospitalization, Other)
  Sender: FDA-Public Use
  Company Number: GB-PFIZER INC-2015078656

PATIENT
  Age: 31 Year
  Sex: Female
  Weight: 70 kg

DRUGS (1)
  1. CHAMPIX [Suspect]
     Active Substance: VARENICLINE TARTRATE
     Indication: SMOKING CESSATION THERAPY
     Dosage: 1 MG, 2X/DAY
     Route: 048
     Dates: start: 20150126, end: 20150216

REACTIONS (11)
  - Paranoia [Recovering/Resolving]
  - Psychomotor hyperactivity [Recovering/Resolving]
  - Hallucination, auditory [Recovering/Resolving]
  - Acute psychosis [Recovering/Resolving]
  - Screaming [Recovering/Resolving]
  - Poor quality sleep [Unknown]
  - Tearfulness [Recovering/Resolving]
  - Anxiety [Recovering/Resolving]
  - Mental impairment [Recovering/Resolving]
  - Suspiciousness [Recovering/Resolving]
  - Abnormal behaviour [Recovering/Resolving]

NARRATIVE: CASE EVENT DATE: 20150209
